FAERS Safety Report 14799447 (Version 1)
Quarter: 2018Q2

REPORT INFORMATION
  Report Type: Spontaneous
  Country: JP (occurrence: JP)
  Receive Date: 20180424
  Receipt Date: 20180424
  Transmission Date: 20180711
  Serious: Yes (Life-Threatening)
  Sender: FDA-Public Use
  Company Number: JP-BAYER-200110417BYL

PATIENT
  Age: 40 Year
  Sex: Male
  Weight: 54.5 kg

DRUGS (11)
  1. CERCINE [Concomitant]
     Active Substance: DIAZEPAM
     Indication: SURGERY
     Dosage: UNK
     Route: 042
     Dates: start: 20010425, end: 20010425
  2. LOXONIN [Concomitant]
     Active Substance: LOXOPROFEN SODIUM
     Indication: PYREXIA
     Dosage: DAILY DOSE 60 MG
     Route: 048
     Dates: start: 20010430, end: 20010501
  3. PANALDINE [Suspect]
     Active Substance: TICLOPIDINE HYDROCHLORIDE
     Indication: ARTERIOVENOUS MALFORMATION
     Dosage: DAILY DOSE 200 MG
     Route: 048
     Dates: start: 20010426, end: 20010502
  4. EXCEGRAN [Concomitant]
     Active Substance: ZONISAMIDE
     Indication: EPILEPSY
     Dosage: DAILY DOSE 200 MG
     Route: 048
     Dates: start: 20010321, end: 20010503
  5. ROCEPHIN [Concomitant]
     Active Substance: CEFTRIAXONE SODIUM
     Indication: PYREXIA
     Dosage: 2 G (DAILY DOSE), , INTRAVENOUS
     Route: 042
     Dates: start: 20010501, end: 20010503
  6. ATROPINE SULFATE. [Concomitant]
     Active Substance: ATROPINE SULFATE
     Indication: SURGERY
     Dosage: UNK
     Route: 042
     Dates: start: 20010425, end: 20010425
  7. IOPAMIRON [Suspect]
     Active Substance: IOPAMIDOL
     Dosage: UNK
     Route: 042
     Dates: start: 20010425, end: 20010425
  8. ISOMYTAL [Concomitant]
     Active Substance: AMOBARBITAL SODIUM
     Indication: SURGERY
     Dosage: UNK
     Route: 042
     Dates: start: 20010425, end: 20010425
  9. BAYASPIRIN 100 MG [Suspect]
     Active Substance: ASPIRIN
     Indication: ARTERIOVENOUS MALFORMATION
     Dosage: 100 MG, QD
     Route: 048
     Dates: start: 20010426, end: 20010503
  10. PANALDINE [Suspect]
     Active Substance: TICLOPIDINE HYDROCHLORIDE
     Indication: CEREBROVASCULAR ACCIDENT PROPHYLAXIS
  11. NEUTROGIN [Concomitant]
     Active Substance: LENOGRASTIM
     Indication: SURGERY
     Dosage: UNK
     Route: 042
     Dates: start: 20010425, end: 20010425

REACTIONS (1)
  - Stevens-Johnson syndrome [Recovered/Resolved]

NARRATIVE: CASE EVENT DATE: 20010502
